FAERS Safety Report 5759184-5 (Version None)
Quarter: 2008Q2

REPORT INFORMATION
  Report Type: 
  Country: None (occurrence: None)
  Receive Date: 20080602
  Receipt Date: 20080513
  Transmission Date: 20081010
  Serious: Yes (Hospitalization)
  Sender: FDA-Public Use
  Company Number: S08-CAN-00928-01

PATIENT
  Sex: Female

DRUGS (4)
  1. CELEXA [Suspect]
  2. CELEXA [Suspect]
     Dates: start: 20071022, end: 20071022
  3. XERAX (BENZODIAZEPINE DERIVATIVES) [Suspect]
     Dates: start: 20071022, end: 20071022
  4. BEER (ETHANOL) [Concomitant]

REACTIONS (8)
  - AGGRESSION [None]
  - ANXIETY [None]
  - CARDIAC DISORDER [None]
  - INSOMNIA [None]
  - MOOD SWINGS [None]
  - MULTIPLE DRUG OVERDOSE INTENTIONAL [None]
  - RESTLESS LEGS SYNDROME [None]
  - SUICIDE ATTEMPT [None]
